FAERS Safety Report 12810967 (Version 2)
Quarter: 2016Q4

REPORT INFORMATION
  Report Type: Spontaneous
  Country: BR (occurrence: BR)
  Receive Date: 20161005
  Receipt Date: 20161208
  Transmission Date: 20170207
  Serious: Yes (Hospitalization, Other)
  Sender: FDA-Public Use
  Company Number: BR-GLAXOSMITHKLINE-BR2016GSK144093

PATIENT
  Sex: Female

DRUGS (7)
  1. BEROTEC (FENOTEROL HYDROBROMIDE) [Concomitant]
     Indication: ASTHMA
  2. OMEPRAZOLE. [Concomitant]
     Active Substance: OMEPRAZOLE
     Dosage: 1 UNK, QD
     Route: 048
  3. BEROTEC (FENOTEROL HYDROBROMIDE) [Concomitant]
     Indication: FATIGUE
     Route: 055
  4. FUROSEMIDE. [Concomitant]
     Active Substance: FUROSEMIDE
     Indication: HYPERTENSION
  5. SERETIDE [Suspect]
     Active Substance: FLUTICASONE PROPIONATE\SALMETEROL XINAFOATE
     Indication: CHRONIC OBSTRUCTIVE PULMONARY DISEASE
     Dosage: 2 PUFF(S), BID
     Route: 055
  6. ATROVENT [Concomitant]
     Active Substance: IPRATROPIUM BROMIDE
     Indication: FATIGUE
  7. ATROVENT [Concomitant]
     Active Substance: IPRATROPIUM BROMIDE
     Indication: ASTHMA

REACTIONS (7)
  - Urinary tract infection [Recovered/Resolved]
  - Pneumonia [Recovered/Resolved]
  - Product quality issue [Unknown]
  - Drug ineffective [Unknown]
  - Influenza [Unknown]
  - Weight decreased [Unknown]
  - Inappropriate schedule of drug administration [Unknown]
